FAERS Safety Report 10109909 (Version 1)
Quarter: 2014Q2

REPORT INFORMATION
  Report Type: Spontaneous
  Country: US (occurrence: None)
  Receive Date: 20140414
  Receipt Date: 20140414
  Transmission Date: 20141212
  Serious: Yes (Hospitalization, Other)
  Sender: FDA-Public Use
  Company Number: FK201304632

PATIENT
  Age: 66 Year
  Sex: Female
  Weight: 73.1 kg

DRUGS (7)
  1. METHOTREXATE INJECTION USP [Suspect]
     Indication: RHEUMATOID ARTHRITIS
     Route: 058
  2. ASPIRIN (ACETYLSALICYLIC ACID) [Concomitant]
  3. HYDROXYCHLOROQUINE (HYDROXYCHLOROQUINE) (HYDROCHLOROQUINE) [Concomitant]
  4. ALENDRONATE (ALENDRONATE) [Concomitant]
  5. CALCIUM/VIT D (CALCIUM D3 /01483701/) [Concomitant]
  6. DIAZEPAM (DIAZEPAM) [Concomitant]
  7. PREDNISONE (PREDNISONE) [Concomitant]

REACTIONS (3)
  - Ulcer [None]
  - Pancytopenia [None]
  - Alopecia [None]
